FAERS Safety Report 22635065 (Version 1)
Quarter: 2023Q2

REPORT INFORMATION
  Report Type: Spontaneous
  Country: DE (occurrence: DE)
  Receive Date: 20230623
  Receipt Date: 20230623
  Transmission Date: 20230721
  Serious: No
  Sender: FDA-Public Use
  Company Number: DE-AMRYT PHARMACEUTICALS DAC-AEGR006566

PATIENT

DRUGS (5)
  1. METRELEPTIN [Suspect]
     Active Substance: METRELEPTIN
     Indication: Congenital leptin deficiency
     Dosage: 0.03 MILLIGRAM/KILOGRAM, QD
  2. METRELEPTIN [Suspect]
     Active Substance: METRELEPTIN
     Dosage: 0.14 MILLIGRAM/KILOGRAM, QD
  3. METRELEPTIN [Suspect]
     Active Substance: METRELEPTIN
     Dosage: 0.70 MILLIGRAM/KILOGRAM, QD
  4. METRELEPTIN [Suspect]
     Active Substance: METRELEPTIN
     Dosage: 0.31 MILLIGRAM/KILOGRAM, QD
  5. METRELEPTIN [Suspect]
     Active Substance: METRELEPTIN
     Dosage: 0.15 MILLIGRAM/KILOGRAM, QD

REACTIONS (7)
  - Alanine aminotransferase increased [Unknown]
  - Aspartate aminotransferase increased [Unknown]
  - Blood insulin increased [Unknown]
  - Fat tissue decreased [Unknown]
  - Drug specific antibody present [Unknown]
  - Off label use [Unknown]
  - Drug effective for unapproved indication [Unknown]
